FAERS Safety Report 8152452-1 (Version None)
Quarter: 2012Q1

REPORT INFORMATION
  Report Type: 
  Country: None (occurrence: None)
  Receive Date: 20120103
  Receipt Date: 20111020
  Transmission Date: 20120608
  Serious: No
  Sender: FDA-Public Use
  Company Number: AE-2011-002065

PATIENT
  Age: 61 Year
  Sex: Female
  Weight: 81.6475 kg

DRUGS (10)
  1. GLUCOPHAGE [Concomitant]
  2. COREG (CARDILOL) [Concomitant]
  3. ZANTAC (RANITIDINE HYDOHCLORIDE) [Concomitant]
  4. CALCIUM WITH VITAMIN D (CALCIUM WITH CALCIUM D) [Concomitant]
  5. COREG (CARVDILOL) [Concomitant]
  6. INCIVEK [Suspect]
     Dosage: 2250 MG (750 MG1 IN HR)
     Dates: start: 20110930
  7. PEGASYS (PEGINTERFERON ALAFA-2A [Concomitant]
  8. ZANTAC [Concomitant]
  9. PROTONX (PANTOPRAZLE) [Concomitant]
  10. WATER PILL (DIURETCS) [Concomitant]

REACTIONS (2)
  - RASH [None]
  - ANORECTAL DISCOMFORT [None]
